FAERS Safety Report 7093255-9 (Version None)
Quarter: 2010Q4

REPORT INFORMATION
  Report Type: 
  Country: None (occurrence: None)
  Receive Date: 20101110
  Receipt Date: 20101108
  Transmission Date: 20110411
  Serious: Yes (Disabling)
  Sender: FDA-Public Use
  Company Number: DE-SANOFI-AVENTIS-2010SA056196

PATIENT
  Age: 80 Year
  Sex: Male

DRUGS (5)
  1. KETEK [Suspect]
     Route: 048
     Dates: start: 20100816, end: 20100820
  2. TAVANIC [Suspect]
     Route: 048
     Dates: start: 20100816, end: 20100820
  3. AGGRENOX [Concomitant]
     Route: 065
  4. IBU ^RATIOPHARM^ [Concomitant]
     Route: 065
  5. XUSAL [Concomitant]
     Route: 065

REACTIONS (2)
  - DRY MOUTH [None]
  - DYSGEUSIA [None]
